FAERS Safety Report 12737185 (Version 5)
Quarter: 2017Q2

REPORT INFORMATION
  Report Type: Report from Study
  Country: CA (occurrence: CA)
  Receive Date: 20160913
  Receipt Date: 20170602
  Transmission Date: 20170830
  Serious: Yes (Death, Hospitalization, Other)
  Sender: FDA-Public Use
  Company Number: CA-ASTELLAS-2016US033845

PATIENT
  Age: 59 Year
  Sex: Female

DRUGS (2)
  1. TRASTUZUMAB [Suspect]
     Active Substance: TRASTUZUMAB
     Indication: BREAST CANCER
     Dosage: 8 MG/KG, TOTAL SINGLE DOSE
     Route: 042
     Dates: start: 20160808, end: 20160808
  2. ENZALUTAMIDE [Suspect]
     Active Substance: ENZALUTAMIDE
     Indication: BREAST CANCER
     Route: 048
     Dates: start: 20160808, end: 20160826

REACTIONS (2)
  - Malignant neoplasm progression [Fatal]
  - Embolism [Recovering/Resolving]

NARRATIVE: CASE EVENT DATE: 20160827
